FAERS Safety Report 14342054 (Version 12)
Quarter: 2019Q1

REPORT INFORMATION
  Report Type: Spontaneous
  Country: DK (occurrence: DK)
  Receive Date: 20180102
  Receipt Date: 20190318
  Transmission Date: 20190417
  Serious: Yes (Death, Life-Threatening, Hospitalization, Other)
  Sender: FDA-Public Use
  Company Number: DK-MYLANLABS-2017M1083315

PATIENT
  Age: 83 Year
  Sex: Male

DRUGS (6)
  1. WARFARIN [Interacting]
     Active Substance: WARFARIN
     Indication: ANTICOAGULANT THERAPY
     Dosage: 1 GRAM, QD (TREATED WITH WARFARIN FOR SEVERAL YEARS)
     Route: 048
  2. MORPHINE [Interacting]
     Active Substance: MORPHINE
     Indication: BACK PAIN
     Dosage: 30 MG, QD
     Route: 048
  3. WARFARIN [Interacting]
     Active Substance: WARFARIN
     Indication: ATRIAL FIBRILLATION
     Dosage: 1 GRAM, QD
     Route: 048
  4. PARACETAMOL [Interacting]
     Active Substance: ACETAMINOPHEN
     Indication: BACK PAIN
     Dosage: 4 G, QD
     Route: 048
  5. PARACETAMOL [Interacting]
     Active Substance: ACETAMINOPHEN
     Dosage: 1 G, QD
     Route: 048
  6. DICLOFENAC [Suspect]
     Active Substance: DICLOFENAC
     Indication: BACK PAIN
     Dosage: UNK UNK,PRN (RESCUE MEDICATION)
     Route: 048

REACTIONS (14)
  - Drug interaction [Fatal]
  - Medication error [Unknown]
  - Muscular weakness [Fatal]
  - Intentional product misuse [Unknown]
  - Nervous system disorder [Fatal]
  - Coma [Fatal]
  - Unresponsive to stimuli [Fatal]
  - International normalised ratio increased [Fatal]
  - Asthenia [Fatal]
  - Hemianopia homonymous [Fatal]
  - Cerebral haemorrhage [Fatal]
  - Aphasia [Fatal]
  - Hemiparesis [Fatal]
  - Brain midline shift [Fatal]
